FAERS Safety Report 4515676-8 (Version None)
Quarter: 2004Q4

REPORT INFORMATION
  Report Type: 
  Country: None (occurrence: None)
  Receive Date: 20041201
  Receipt Date: 20041125
  Transmission Date: 20050328
  Serious: Yes (Other)
  Sender: FDA-Public Use
  Company Number: DE-MERCK-0411DEU00513

PATIENT
  Age: 47 Year
  Sex: Male

DRUGS (1)
  1. TRUSOPT [Suspect]
     Indication: GLAUCOMA
     Route: 047
     Dates: start: 20040101

REACTIONS (2)
  - PARAESTHESIA [None]
  - RETINAL VEIN THROMBOSIS [None]
